FAERS Safety Report 7445976-3 (Version None)
Quarter: 2011Q2

REPORT INFORMATION
  Report Type: 
  Country: None (occurrence: None)
  Receive Date: 20110429
  Receipt Date: 20100621
  Transmission Date: 20111010
  Serious: No
  Sender: FDA-Public Use
  Company Number: US-ASTRAZENECA-2010SE26589

PATIENT
  Age: 75 Year
  Sex: Female

DRUGS (1)
  1. NEXIUM [Suspect]
     Indication: GASTROOESOPHAGEAL REFLUX DISEASE
     Route: 048
     Dates: start: 20080101, end: 20100501

REACTIONS (9)
  - VICTIM OF CRIME [None]
  - OSTEOPOROSIS [None]
  - KNEE ARTHROPLASTY [None]
  - FALL [None]
  - GONORRHOEA [None]
  - JOINT DISLOCATION [None]
  - FUNGAL INFECTION [None]
  - HAIR TEXTURE ABNORMAL [None]
  - LIGAMENT INJURY [None]
